FAERS Safety Report 9261531 (Version 2)
Quarter: 2013Q2

REPORT INFORMATION
  Report Type: Spontaneous
  Country: JP (occurrence: JP)
  Receive Date: 20130429
  Receipt Date: 20130430
  Transmission Date: 20140414
  Serious: Yes (Other)
  Sender: FDA-Public Use
  Company Number: PHHY2013JP040454

PATIENT
  Age: 24 Year
  Sex: Female
  Weight: 50 kg

DRUGS (3)
  1. ESANBUTOL [Suspect]
     Indication: PULMONARY TUBERCULOSIS
     Dosage: 750 MG, DAILY
     Route: 048
  2. ISONIAZID [Suspect]
     Indication: PULMONARY TUBERCULOSIS
     Dosage: 300 MG, DAILY
     Route: 048
  3. RIFAMPICIN [Suspect]
     Indication: PULMONARY TUBERCULOSIS
     Dosage: 450 MG, DAILY
     Route: 048

REACTIONS (3)
  - Foetal death [Unknown]
  - Hepatic function abnormal [Recovered/Resolved]
  - Maternal exposure during pregnancy [Unknown]
